FAERS Safety Report 20546009 (Version 1)
Quarter: 2022Q1

REPORT INFORMATION
  Report Type: Spontaneous
  Country: ES (occurrence: ES)
  Receive Date: 20220303
  Receipt Date: 20220303
  Transmission Date: 20220423
  Serious: Yes (Life-Threatening, Other)
  Sender: FDA-Public Use
  Company Number: None

PATIENT
  Age: 58 Year
  Sex: Male
  Weight: 83 kg

DRUGS (10)
  1. BELANTAMAB MAFODOTIN [Suspect]
     Active Substance: BELANTAMAB MAFODOTIN
     Indication: Plasma cell myeloma
     Dosage: 200 MG
     Route: 042
     Dates: start: 20211022
  2. LENALIDOMIDE [Suspect]
     Active Substance: LENALIDOMIDE
     Indication: Plasma cell myeloma
     Dosage: 25 MG (25.0 MG A-CO)
     Route: 048
     Dates: start: 20211022
  3. BORTEZOMIB [Suspect]
     Active Substance: BORTEZOMIB
     Indication: Plasma cell myeloma
     Dosage: 2.44 MG
     Route: 058
     Dates: start: 20211022
  4. ACYCLOVIR [Concomitant]
     Active Substance: ACYCLOVIR
     Indication: Plasma cell myeloma
     Dosage: 400 MG, BID (400.0 MG C/12 H)
     Route: 048
     Dates: start: 20211022
  5. OMEPRAZOLE [Concomitant]
     Active Substance: OMEPRAZOLE
     Indication: Plasma cell myeloma
     Dosage: 20 MG (20.0 MG A-DE)
     Route: 048
     Dates: start: 20211023
  6. ACETAMINOPHEN [Concomitant]
     Active Substance: ACETAMINOPHEN
     Indication: Plasma cell myeloma
     Dosage: 1 G (1.0 G DEVICE)
     Route: 048
     Dates: start: 20211022
  7. ASPIRIN [Concomitant]
     Active Substance: ASPIRIN
     Indication: Plasma cell myeloma
     Dosage: 100 MG (100.0 MG DE)
     Route: 048
     Dates: start: 20211023
  8. LORMETAZEPAM [Concomitant]
     Active Substance: LORMETAZEPAM
     Indication: Insomnia
     Dosage: 1 MG, QD (1.0 MG C/24 H NOC)
     Route: 048
     Dates: start: 20211129
  9. CALCIUM CARBONATE [Concomitant]
     Active Substance: CALCIUM CARBONATE
     Indication: Plasma cell myeloma
     Dosage: 1200 MG (1250.0 MG CE )
     Route: 048
     Dates: start: 20220124
  10. FML [Concomitant]
     Active Substance: FLUOROMETHOLONE
     Indication: Keratitis
     Dosage: UNK, QID (1.0 GTS W/6 HOURS)
     Route: 047
     Dates: start: 20220111, end: 20220210

REACTIONS (2)
  - Interstitial lung disease [Recovering/Resolving]
  - Thrombosis [Recovering/Resolving]

NARRATIVE: CASE EVENT DATE: 20220131
